FAERS Safety Report 5786375-X (Version None)
Quarter: 2008Q2

REPORT INFORMATION
  Report Type: 
  Country: None (occurrence: None)
  Receive Date: 20080624
  Receipt Date: 20070719
  Transmission Date: 20081010
  Serious: No
  Sender: FDA-Public Use
  Company Number: US-ASTRAZENECA-2007UW17129

PATIENT
  Age: 58 Year
  Sex: Female
  Weight: 90.7 kg

DRUGS (14)
  1. PULMICORT FLEXHALER [Suspect]
     Indication: ASTHMA
     Dosage: 120 DOSES
     Route: 055
  2. PULMICORT FLEXHALER [Suspect]
     Dosage: 120 DOSES
     Route: 055
  3. ACCUPRIL [Concomitant]
  4. ATENOLOL [Concomitant]
  5. PROTONIX [Concomitant]
  6. ATIVAN [Concomitant]
  7. LORAZEPAM [Concomitant]
  8. HYOSCYAMINE [Concomitant]
  9. CALCIUM [Concomitant]
  10. SOY [Concomitant]
  11. ASPIRIN [Concomitant]
  12. MULTI-VITAMIN [Concomitant]
  13. FISH OIL [Concomitant]
  14. GLUCOSAMINE [Concomitant]

REACTIONS (2)
  - DYSGEUSIA [None]
  - LUNG DISORDER [None]
